FAERS Safety Report 5038317-2 (Version None)
Quarter: 2006Q2

REPORT INFORMATION
  Report Type: 
  Country: None (occurrence: None)
  Receive Date: 20060601
  Receipt Date: 20060109
  Transmission Date: 20061013
  Serious: No
  Sender: FDA-Public Use
  Company Number: 2006PV006813

PATIENT
  Age: 71 Year
  Sex: Male
  Weight: 103.8737 kg

DRUGS (3)
  1. BYETTA [Suspect]
     Indication: DIABETES MELLITUS NON-INSULIN-DEPENDENT
     Dosage: 5 MCG BID SC
     Route: 058
     Dates: start: 20060106
  2. PREVACID [Concomitant]
  3. ASPIRIN [Concomitant]

REACTIONS (4)
  - ABDOMINAL DISTENSION [None]
  - ERUCTATION [None]
  - FLATULENCE [None]
  - VOMITING [None]
